FAERS Safety Report 7919574-9 (Version None)
Quarter: 2011Q4

REPORT INFORMATION
  Report Type: 
  Country: None (occurrence: None)
  Receive Date: 20111116
  Receipt Date: 20111116
  Transmission Date: 20120403
  Serious: Yes (Hospitalization)
  Sender: FDA-Public Use
  Company Number: None

PATIENT
  Age: 78 Year
  Sex: Male
  Weight: 109.3 kg

DRUGS (7)
  1. PRADAXA [Suspect]
     Indication: ATRIAL FIBRILLATION
     Dosage: 150 MG BID PO
     Route: 048
     Dates: start: 20110401
  2. TERAZOSIN HCL [Concomitant]
  3. PRAVASTATIN [Concomitant]
  4. ENALAPRIL MALEATE [Concomitant]
  5. LASIX [Concomitant]
  6. CLONIDINE [Concomitant]
  7. NIFEDIPINE [Concomitant]

REACTIONS (5)
  - CALCULUS URETERIC [None]
  - CHEST PAIN [None]
  - HAEMATOMA [None]
  - DYSPNOEA [None]
  - FATIGUE [None]
